FAERS Safety Report 17974300 (Version 1)
Quarter: 2020Q3

REPORT INFORMATION
  Report Type: Spontaneous
  Country: US (occurrence: US)
  Receive Date: 20200702
  Receipt Date: 20200702
  Transmission Date: 20201103
  Serious: Yes (Life-Threatening)
  Sender: FDA-Public Use
  Company Number: None

PATIENT
  Age: 94 Year
  Sex: Male

DRUGS (21)
  1. CRANBERRY. [Concomitant]
     Active Substance: CRANBERRY
  2. FLUTICASONE. [Concomitant]
     Active Substance: FLUTICASONE
  3. LACTULOSE. [Concomitant]
     Active Substance: LACTULOSE
  4. PRAVASTATIN. [Concomitant]
     Active Substance: PRAVASTATIN
  5. VITAMIN B12 [Concomitant]
     Active Substance: CYANOCOBALAMIN
  6. VITAMIN D3 [Concomitant]
     Active Substance: CHOLECALCIFEROL
  7. XOPENEX HFA [Concomitant]
     Active Substance: LEVALBUTEROL TARTRATE
  8. RANITIDINE. [Concomitant]
     Active Substance: RANITIDINE
  9. LOSARTAN. [Concomitant]
     Active Substance: LOSARTAN
  10. TAMSULOSIN [Concomitant]
     Active Substance: TAMSULOSIN
  11. TUMS [Concomitant]
     Active Substance: CALCIUM CARBONATE
  12. AMIODARONE [Concomitant]
     Active Substance: AMIODARONE
  13. CLOPIDOGREL [Concomitant]
     Active Substance: CLOPIDOGREL BISULFATE
  14. LEVOTHYROXIN [Concomitant]
     Active Substance: LEVOTHYROXINE
  15. POTASS CHLOR [Concomitant]
  16. ERLEADA [Suspect]
     Active Substance: APALUTAMIDE
     Indication: PROSTATE CANCER
     Route: 048
     Dates: start: 20190320
  17. ASPIRIN. [Concomitant]
     Active Substance: ASPIRIN
  18. CITALOPRAM [Concomitant]
     Active Substance: CITALOPRAM HYDROBROMIDE
  19. LASIX [Concomitant]
     Active Substance: FUROSEMIDE
  20. METOPROLOL TARTRATE. [Concomitant]
     Active Substance: METOPROLOL TARTRATE
  21. PRESERVISION [Concomitant]
     Active Substance: MINERALS\VITAMINS

REACTIONS (1)
  - Myocardial infarction [None]

NARRATIVE: CASE EVENT DATE: 20200625
